FAERS Safety Report 4704691-7 (Version None)
Quarter: 2005Q2

REPORT INFORMATION
  Report Type: 
  Country: None (occurrence: None)
  Receive Date: 20050629
  Receipt Date: 20050620
  Transmission Date: 20051028
  Serious: Yes (Life-Threatening, Hospitalization)
  Sender: FDA-Public Use
  Company Number: CIP04001134

PATIENT
  Age: 54 Year
  Sex: Female

DRUGS (2)
  1. ACTONEL [Suspect]
     Indication: OSTEOPOROSIS
     Dosage: 35 MG ONE DOSE, ORAL
     Route: 048
     Dates: start: 20031023, end: 20031023
  2. CALCIUM SANDOZ C (ASCORBIC ACID, CALCIUM GLUBIONATE) [Concomitant]

REACTIONS (16)
  - ANAEMIA [None]
  - ASTHENIA [None]
  - BACK PAIN [None]
  - CHROMATURIA [None]
  - DIZZINESS [None]
  - HAEMOGLOBINURIA [None]
  - HAEMOLYSIS [None]
  - INTRAVASCULAR HAEMOLYSIS [None]
  - NEUTROPHILIA [None]
  - PROTEINURIA [None]
  - PYREXIA [None]
  - RENAL FAILURE ACUTE [None]
  - RENAL TUBULAR NECROSIS [None]
  - TACHYCARDIA [None]
  - THROMBOCYTOPENIA [None]
  - WHITE BLOOD CELL COUNT INCREASED [None]
